FAERS Safety Report 7128430-8 (Version None)
Quarter: 2010Q4

REPORT INFORMATION
  Report Type: 
  Country: None (occurrence: None)
  Receive Date: 20101130
  Receipt Date: 20101123
  Transmission Date: 20110411
  Serious: Yes (Hospitalization)
  Sender: FDA-Public Use
  Company Number: DE-SANOFI-AVENTIS-2010SA070978

PATIENT
  Age: 77 Year
  Sex: Female

DRUGS (8)
  1. TAXOTERE [Suspect]
     Route: 041
     Dates: start: 20100721, end: 20100721
  2. TAXOTERE [Suspect]
     Route: 041
     Dates: start: 20101115, end: 20101115
  3. OXALIPLATIN [Suspect]
     Route: 041
     Dates: start: 20100721, end: 20100721
  4. OXALIPLATIN [Suspect]
     Route: 041
     Dates: start: 20101115, end: 20101115
  5. 5-FU [Suspect]
     Route: 041
     Dates: start: 20100721, end: 20100721
  6. 5-FU [Suspect]
     Route: 041
     Dates: start: 20101115, end: 20101115
  7. FOLINIC ACID [Suspect]
     Route: 041
     Dates: start: 20100721, end: 20100721
  8. FOLINIC ACID [Suspect]
     Route: 041
     Dates: start: 20101115, end: 20101115

REACTIONS (1)
  - ADVERSE EVENT [None]
